FAERS Safety Report 9101798 (Version 1)
Quarter: 2013Q1

REPORT INFORMATION
  Report Type: Spontaneous
  Country: BR (occurrence: BR)
  Receive Date: 20130218
  Receipt Date: 20130218
  Transmission Date: 20140127
  Serious: Yes (Hospitalization, Other)
  Sender: FDA-Public Use
  Company Number: BR-AMGEN-BRASP2013009905

PATIENT
  Age: 63 Year
  Sex: Female
  Weight: 63 kg

DRUGS (3)
  1. ENBREL [Suspect]
     Indication: RHEUMATOID ARTHRITIS
     Dosage: 50 MG, ONCE WEEKLY
     Route: 058
     Dates: start: 201205
  2. METHOTREXATE [Concomitant]
     Dosage: 25 MG, 7 ML, ONCE WEEKLY
  3. CONCORE [Concomitant]
     Dosage: 5 MG, 1X/DAY
     Dates: start: 1995

REACTIONS (1)
  - Cerebrovascular accident [Unknown]
